FAERS Safety Report 21593120 (Version 1)
Quarter: 2022Q4

REPORT INFORMATION
  Report Type: Spontaneous
  Country: US (occurrence: None)
  Receive Date: 20221111
  Receipt Date: 20221111
  Transmission Date: 20230113
  Serious: No
  Sender: FDA-Public Use
  Company Number: None

PATIENT
  Sex: Female

DRUGS (1)
  1. HUMIRA [Suspect]
     Active Substance: ADALIMUMAB
     Indication: Crohn^s disease
     Dosage: 40MG/0.4ML  EVERY 14 DAYSUBCUTANEOUS?
     Route: 058
     Dates: start: 202210

REACTIONS (3)
  - Device defective [None]
  - Device delivery system issue [None]
  - Injection site bruising [None]
